FAERS Safety Report 6552587-0 (Version None)
Quarter: 2010Q1

REPORT INFORMATION
  Report Type: 
  Country: None (occurrence: None)
  Receive Date: 20100126
  Receipt Date: 20100120
  Transmission Date: 20100710
  Serious: Yes (Other)
  Sender: FDA-Public Use
  Company Number: AT-ROXANE LABORATORIES, INC.-2010-RO-00068RO

PATIENT
  Age: 2 Year
  Sex: Male

DRUGS (11)
  1. FUROSEMIDE [Suspect]
  2. MYCOPHENOLATE MOFETIL [Suspect]
     Indication: IMMUNOSUPPRESSION
  3. MYCOPHENOLATE MOFETIL [Suspect]
  4. MYCOPHENOLATE MOFETIL [Suspect]
  5. PREDNISOLONE [Suspect]
     Indication: IMMUNOSUPPRESSION
  6. PREDNISOLONE [Suspect]
  7. TACROLIMUS [Suspect]
     Indication: IMMUNOSUPPRESSION
  8. TACROLIMUS [Suspect]
  9. PIPERACILLIN AND TAZOBACTAM [Suspect]
     Indication: PROPHYLAXIS
  10. GANCICLOVIR [Suspect]
     Indication: PROPHYLAXIS
  11. AMOXICILLIN AND CLAVULANATE POTASSIUM [Suspect]
     Indication: PROPHYLAXIS

REACTIONS (3)
  - ADVERSE DRUG REACTION [None]
  - DEAFNESS [None]
  - SPEECH DISORDER DEVELOPMENTAL [None]
